FAERS Safety Report 24158230 (Version 1)
Quarter: 2024Q3

REPORT INFORMATION
  Report Type: Spontaneous
  Country: US (occurrence: None)
  Receive Date: 20240731
  Receipt Date: 20240731
  Transmission Date: 20241017
  Serious: Yes (Other)
  Sender: Public
  Company Number: None

PATIENT
  Age: 53 Year
  Sex: Female
  Weight: 80.1 kg

DRUGS (5)
  1. WEGOVY [Suspect]
     Active Substance: SEMAGLUTIDE
     Indication: Weight decreased
     Dosage: OTHER QUANTITY : 4 INJECTION?OTHER FREQUENCY : 1X WEEKLY?OTHER ROUTE : INJECTION ABDOMEN+ 2^ AWAY FR
     Route: 050
     Dates: start: 20240315, end: 20240722
  2. VALSARTAN [Concomitant]
     Active Substance: VALSARTAN
  3. METOPROLOL [Concomitant]
     Active Substance: METOPROLOL
  4. HERBALS\TURMERIC [Concomitant]
     Active Substance: HERBALS\TURMERIC
  5. MAGNESIUM CITRATE [Concomitant]
     Active Substance: MAGNESIUM CITRATE

REACTIONS (6)
  - Constipation [None]
  - Vaginal disorder [None]
  - Haemorrhoids [None]
  - Dizziness [None]
  - Gastrointestinal disorder [None]
  - Urinary tract disorder [None]

NARRATIVE: CASE EVENT DATE: 20240710
